FAERS Safety Report 6396623-3 (Version None)
Quarter: 2009Q4

REPORT INFORMATION
  Report Type: 
  Country: None (occurrence: None)
  Receive Date: 20091012
  Receipt Date: 20091001
  Transmission Date: 20100525
  Serious: Yes (Hospitalization)
  Sender: FDA-Public Use
  Company Number: US-NOVOPROD-292335

PATIENT
  Sex: Female
  Weight: 79.365 kg

DRUGS (4)
  1. NOVOLIN 70/30 [Suspect]
     Indication: INSULIN-REQUIRING TYPE 2 DIABETES MELLITUS
     Dosage: UNK, UNK
     Route: 058
  2. COZAAR [Concomitant]
     Indication: HYPERTENSION
  3. PLAVIX [Concomitant]
     Indication: HYPERTENSION
  4. POTASSIUM CHLORIDE [Concomitant]
     Indication: DRUG USE FOR UNKNOWN INDICATION
     Dosage: UNK, QD

REACTIONS (4)
  - BLOOD GLUCOSE INCREASED [None]
  - INFECTED SKIN ULCER [None]
  - POOR PERIPHERAL CIRCULATION [None]
  - SKIN ULCER [None]
